FAERS Safety Report 19383286 (Version 1)
Quarter: 2021Q2

REPORT INFORMATION
  Report Type: Spontaneous
  Country: JP (occurrence: JP)
  Receive Date: 20210608
  Receipt Date: 20210608
  Transmission Date: 20210717
  Serious: Yes (Life-Threatening, Hospitalization, Other)
  Sender: FDA-Public Use
  Company Number: JP-JNJFOC-A-CH2020-202695

PATIENT
  Age: 5 Month
  Sex: Male

DRUGS (12)
  1. ADCIRCA [Suspect]
     Active Substance: TADALAFIL
     Indication: PULMONARY ARTERIAL HYPERTENSION
     Route: 048
     Dates: start: 20180622
  2. OPSUMIT [Suspect]
     Active Substance: MACITENTAN
     Indication: PULMONARY ARTERIAL HYPERTENSION
     Dosage: 0.6 MG, QD
     Route: 048
     Dates: start: 20180624
  3. UPTRAVI [Suspect]
     Active Substance: SELEXIPAG
     Dosage: 0.1 MG, BID
     Route: 048
     Dates: start: 20080724
  4. ADCIRCA [Suspect]
     Active Substance: TADALAFIL
     Route: 048
     Dates: start: 20180627
  5. UPTRAVI [Suspect]
     Active Substance: SELEXIPAG
     Dosage: 0.04 MG, BID
     Route: 048
     Dates: start: 20080709
  6. FUROSEMIDE. [Concomitant]
     Active Substance: FUROSEMIDE
     Route: 042
  7. UPTRAVI [Suspect]
     Active Substance: SELEXIPAG
     Dosage: 0.02 MG, BID
     Route: 048
     Dates: start: 20180703
  8. UPTRAVI [Suspect]
     Active Substance: SELEXIPAG
     Dosage: 0.03 MG, BID
     Route: 048
     Dates: start: 20180704
  9. UPTRAVI [Suspect]
     Active Substance: SELEXIPAG
     Dosage: 0.05 MG, BID
     Route: 048
     Dates: start: 20080713
  10. UPTRAVI [Suspect]
     Active Substance: SELEXIPAG
     Indication: PULMONARY ARTERIAL HYPERTENSION
     Dosage: 0.01 MG, BID
     Route: 048
     Dates: start: 20180628
  11. UPTRAVI [Suspect]
     Active Substance: SELEXIPAG
     Dosage: 0.075 MG, BID
     Route: 048
     Dates: start: 20080719
  12. ADCIRCA [Suspect]
     Active Substance: TADALAFIL
     Route: 048
     Dates: start: 20180625

REACTIONS (12)
  - Concomitant disease aggravated [Recovered/Resolved]
  - Pyrexia [Recovering/Resolving]
  - Off label use [Unknown]
  - C-reactive protein increased [Recovering/Resolving]
  - Atelectasis [Recovering/Resolving]
  - KL-6 increased [Recovering/Resolving]
  - Product use issue [Unknown]
  - Interstitial lung disease [Recovered/Resolved]
  - Pulmonary hypertension [Recovering/Resolving]
  - Pulmonary congestion [Recovering/Resolving]
  - Blood pressure decreased [Recovering/Resolving]
  - Oxygen saturation decreased [Recovering/Resolving]

NARRATIVE: CASE EVENT DATE: 201807
